FAERS Safety Report 14748227 (Version 1)
Quarter: 2018Q2

REPORT INFORMATION
  Report Type: Spontaneous
  Country: GB (occurrence: GB)
  Receive Date: 20180411
  Receipt Date: 20180411
  Transmission Date: 20180711
  Serious: Yes (Death, Hospitalization)
  Sender: FDA-Public Use
  Company Number: GB-VALIDUS PHARMACEUTICALS LLC-GB-2018VAL000635

PATIENT
  Age: 12 Year
  Sex: Male

DRUGS (7)
  1. METRONIDAZOLE. [Suspect]
     Active Substance: METRONIDAZOLE
     Indication: ANTIBIOTIC THERAPY
     Dosage: 7 MG/KG, UNK
     Route: 042
  2. METRONIDAZOLE. [Suspect]
     Active Substance: METRONIDAZOLE
     Dosage: 7 MG/KG, UNK
     Route: 048
  3. CEFOTAXIME SODIUM [Suspect]
     Active Substance: CEFOTAXIME SODIUM
     Indication: ANTIBIOTIC THERAPY
     Dosage: 50 MG/KG, QD
     Route: 065
  4. AMPICILLIN [Suspect]
     Active Substance: AMPICILLIN
     Indication: ANTIBIOTIC THERAPY
     Dosage: UNK
     Route: 048
  5. CLOXACILLIN [Suspect]
     Active Substance: CLOXACILLIN
     Indication: ANTIBIOTIC THERAPY
     Dosage: 25 MG/KG, QD
     Route: 048
  6. AMPICILLIN [Suspect]
     Active Substance: AMPICILLIN
     Dosage: UNK
     Route: 042
  7. GENTAMICIN. [Suspect]
     Active Substance: GENTAMICIN
     Indication: ANTIBIOTIC THERAPY
     Dosage: UNK
     Route: 042

REACTIONS (12)
  - Abdominal pain [Unknown]
  - Abdominal distension [Unknown]
  - Oliguria [Unknown]
  - Gastroenteritis [Unknown]
  - Blood creatinine increased [Unknown]
  - Leukocytosis [Unknown]
  - Clostridium difficile infection [Fatal]
  - Ascites [Unknown]
  - Blood albumin decreased [Unknown]
  - Pseudomembranous colitis [Fatal]
  - Tenderness [Unknown]
  - Vomiting [Unknown]
